FAERS Safety Report 19019347 (Version 2)
Quarter: 2021Q2

REPORT INFORMATION
  Report Type: Spontaneous
  Country: GB (occurrence: GB)
  Receive Date: 20210317
  Receipt Date: 20210408
  Transmission Date: 20210717
  Serious: Yes (Death, Other)
  Sender: FDA-Public Use
  Company Number: GB-SA-2018SA123541

PATIENT
  Age: 49 Year
  Sex: Female

DRUGS (31)
  1. ZOPICLONE [Concomitant]
     Active Substance: ZOPICLONE
  2. CLOTRIMAZOLE. [Concomitant]
     Active Substance: CLOTRIMAZOLE
  3. DOMPERIDONE [Concomitant]
     Active Substance: DOMPERIDONE
  4. GLYCOPYRRONIUM [Concomitant]
     Active Substance: GLYCOPYRRONIUM
     Dosage: UNK
  5. MORPHINE SULFATE. [Concomitant]
     Active Substance: MORPHINE SULFATE
  6. DOCETAXEL. [Suspect]
     Active Substance: DOCETAXEL
     Indication: BREAST CANCER METASTATIC
     Dosage: 132 MG LOADING DOSE
     Route: 042
     Dates: start: 20151022, end: 20151022
  7. LANSOPRAZOLE. [Concomitant]
     Active Substance: LANSOPRAZOLE
  8. MICONAZOLE. [Concomitant]
     Active Substance: MICONAZOLE
  9. TRASTUZUMAB EMTANSINE [Suspect]
     Active Substance: ADO-TRASTUZUMAB EMTANSINE
     Indication: BREAST CANCER METASTATIC
     Dosage: 240 MG, Q3W
     Route: 042
     Dates: start: 20161201, end: 20161201
  10. PERTUZUMAB. [Suspect]
     Active Substance: PERTUZUMAB
     Indication: BREAST CANCER METASTATIC
     Dosage: 840 MG LOADING DOSE
     Route: 042
     Dates: start: 20151023, end: 20151023
  11. MIDAZOLAM. [Concomitant]
     Active Substance: MIDAZOLAM
  12. DOCETAXEL. [Suspect]
     Active Substance: DOCETAXEL
     Dosage: 108 MG, Q3W
     Route: 042
     Dates: start: 20151120
  13. TRASTUZUMAB. [Suspect]
     Active Substance: TRASTUZUMAB
     Indication: BREAST CANCER METASTATIC
     Dosage: 525 MG LOADING DOSE
     Route: 042
     Dates: start: 20151023, end: 20151023
  14. FILGRASTIM [Concomitant]
     Active Substance: FILGRASTIM
  15. TRIMETHOPRIM. [Concomitant]
     Active Substance: TRIMETHOPRIM
     Dosage: UNK
  16. TRASTUZUMAB EMTANSINE [Suspect]
     Active Substance: ADO-TRASTUZUMAB EMTANSINE
     Dosage: 200 MG, Q3W
     Route: 042
     Dates: start: 20170330, end: 20170608
  17. CALCICHEW [Concomitant]
     Active Substance: CALCIUM CARBONATE
  18. DEXAMETHASONE. [Concomitant]
     Active Substance: DEXAMETHASONE
  19. HALOPERIDOL. [Concomitant]
     Active Substance: HALOPERIDOL
     Dosage: UNK
  20. ONDANSETRON [Concomitant]
     Active Substance: ONDANSETRON
  21. MIGRALEVE [BUCLIZINE HYDROCHLORIDE;CODEINE PHOSPHATE;PARACETAMOL] [Concomitant]
     Dosage: UNK
  22. TRASTUZUMAB. [Suspect]
     Active Substance: TRASTUZUMAB
     Dosage: 400 MG,Q3W MAINTENANCE DOSE
     Route: 042
     Dates: start: 20151120, end: 20151120
  23. PERTUZUMAB. [Suspect]
     Active Substance: PERTUZUMAB
     Dosage: 420 MG,Q3W MAINTENANCE DOSE
     Route: 042
     Dates: start: 20151120
  24. CHLORAMPHENICOL [Concomitant]
     Active Substance: CHLORAMPHENICOL
  25. HYDROCORTISONE. [Concomitant]
     Active Substance: HYDROCORTISONE
  26. MIGRALEVE YELLOW [Concomitant]
  27. ZOLEDRONIC ACID [Concomitant]
     Active Substance: ZOLEDRONIC ACID
     Dosage: UNK
  28. LETROZOLE. [Suspect]
     Active Substance: LETROZOLE
     Indication: BREAST CANCER METASTATIC
     Dosage: 2.5 MG,QD
     Route: 048
     Dates: start: 20160308, end: 20161123
  29. CHLORPHENAMINE [Concomitant]
     Active Substance: CHLORPHENIRAMINE MALEATE
  30. HALOPERIDOL. [Concomitant]
     Active Substance: HALOPERIDOL
  31. NYSTATIN. [Concomitant]
     Active Substance: NYSTATIN

REACTIONS (8)
  - Vulvovaginal candidiasis [Recovered/Resolved]
  - Rectal haemorrhage [Fatal]
  - Neuropathy peripheral [Recovered/Resolved]
  - Insomnia [Recovered/Resolved]
  - Conjunctivitis [Recovered/Resolved]
  - Urinary tract infection [Recovered/Resolved]
  - Nausea [Recovered/Resolved]
  - Oral candidiasis [Recovered/Resolved]

NARRATIVE: CASE EVENT DATE: 201705
